FAERS Safety Report 8312090-4 (Version None)
Quarter: 2012Q2

REPORT INFORMATION
  Report Type: 
  Country: None (occurrence: None)
  Receive Date: 20120425
  Receipt Date: 20120423
  Transmission Date: 20120825
  Serious: Yes (Death)
  Sender: FDA-Public Use
  Company Number: DE-B.I. PHARMACEUTICALS,INC./RIDGEFIELD-2012-DE-00710DE

PATIENT
  Sex: Female
  Weight: 55 kg

DRUGS (4)
  1. PRADAXA [Suspect]
  2. PRADAXA [Suspect]
     Indication: ATRIAL FIBRILLATION
     Dosage: 220 MG
     Dates: start: 20120110
  3. RAMIPRIL [Concomitant]
     Indication: HYPERTENSION
     Dosage: 10 MG
     Dates: start: 20110802
  4. AMLODIPINE [Concomitant]
     Indication: HYPERTENSION
     Dosage: 10 MG
     Dates: start: 20110818

REACTIONS (1)
  - DEATH [None]
